FAERS Safety Report 8047195-9 (Version None)
Quarter: 2012Q1

REPORT INFORMATION
  Report Type: 
  Country: None (occurrence: None)
  Receive Date: 20120116
  Receipt Date: 20120109
  Transmission Date: 20120608
  Serious: Yes (Hospitalization)
  Sender: FDA-Public Use
  Company Number: US-BAYER-201032407NA

PATIENT
  Age: 43 Year
  Sex: Female
  Weight: 65.76 kg

DRUGS (7)
  1. ADDERALL 5 [Concomitant]
     Indication: ATTENTION DEFICIT/HYPERACTIVITY DISORDER
     Dosage: 10 MG, BID
  2. ALBUTEROL [Concomitant]
  3. PROVERA [Concomitant]
     Indication: VAGINAL HAEMORRHAGE
     Dosage: 10 MG, UNK
     Dates: start: 20070412, end: 20071022
  4. IBUPROFEN [Concomitant]
     Dosage: UNK
     Dates: start: 19960101
  5. ATIVAN [Concomitant]
     Dosage: 1 MG, UNK
     Route: 042
  6. YAZ [Suspect]
     Indication: PRODUCT USED FOR UNKNOWN INDICATION
     Dosage: UNK UNK, QD
     Route: 048
     Dates: start: 20070501, end: 20070701
  7. VITAMIN C [Concomitant]
     Dosage: UNK
     Dates: start: 20050101

REACTIONS (2)
  - PULMONARY EMBOLISM [None]
  - PULMONARY INFARCTION [None]
